FAERS Safety Report 10907123 (Version 1)
Quarter: 2015Q1

REPORT INFORMATION
  Report Type: Spontaneous
  Country: US (occurrence: None)
  Receive Date: 20150309
  Receipt Date: 20150309
  Transmission Date: 20150721
  Serious: Yes (Death)
  Sender: FDA-Public Use
  Company Number: 2015COV00036

PATIENT
  Age: 89 Year
  Sex: Female

DRUGS (1)
  1. KAYEXALATE [Suspect]
     Active Substance: SODIUM POLYSTYRENE SULFONATE
     Indication: BLOOD POTASSIUM INCREASED
     Route: 048

REACTIONS (9)
  - Acute respiratory distress syndrome [None]
  - Shock [None]
  - Aspiration [None]
  - Hypoxia [None]
  - Acute lung injury [None]
  - Cardiac arrest [None]
  - Pulseless electrical activity [None]
  - Multi-organ failure [None]
  - Vomiting [None]
